FAERS Safety Report 19766457 (Version 2)
Quarter: 2021Q4

REPORT INFORMATION
  Report Type: Spontaneous
  Country: US (occurrence: US)
  Receive Date: 20210831
  Receipt Date: 20211011
  Transmission Date: 20220303
  Serious: Yes (Hospitalization)
  Sender: FDA-Public Use
  Company Number: US-ABBVIE-21K-163-4057510-00

PATIENT
  Age: 83 Year
  Sex: Male

DRUGS (2)
  1. LUPRON [Suspect]
     Active Substance: LEUPROLIDE ACETATE
     Indication: Product used for unknown indication
     Route: 065
     Dates: start: 2015
  2. XTANDI [Suspect]
     Active Substance: ENZALUTAMIDE
     Indication: Neoplasm malignant
     Route: 048
     Dates: start: 2019

REACTIONS (8)
  - Crohn^s disease [Recovered/Resolved]
  - Enteritis infectious [Recovered/Resolved]
  - Intestinal obstruction [Recovered/Resolved]
  - Upper limb fracture [Unknown]
  - Hot flush [Unknown]
  - Hot flush [Unknown]
  - Hair growth abnormal [Unknown]
  - Hypoaesthesia [Unknown]

NARRATIVE: CASE EVENT DATE: 20190101
